FAERS Safety Report 11766846 (Version 2)
Quarter: 2016Q2

REPORT INFORMATION
  Report Type: Spontaneous
  Country: US (occurrence: US)
  Receive Date: 20151123
  Receipt Date: 20160428
  Transmission Date: 20160815
  Serious: Yes (Hospitalization)
  Sender: FDA-Public Use
  Company Number: US-BEH-2015055902

PATIENT
  Age: 46 Year
  Sex: Male
  Weight: 68 kg

DRUGS (17)
  1. LEXAPRO [Concomitant]
     Active Substance: ESCITALOPRAM OXALATE
     Indication: DEPRESSION
  2. HIZENTRA [Suspect]
     Active Substance: HUMAN IMMUNOGLOBULIN G
     Indication: IMMUNODEFICIENCY COMMON VARIABLE
     Dosage: START DATE: ??-MAY-2014
     Route: 058
  3. HIZENTRA [Suspect]
     Active Substance: HUMAN IMMUNOGLOBULIN G
     Dosage: START DATE: ??-MAY-2014
     Route: 058
  4. DIPHENHYDRAMINE. [Concomitant]
     Active Substance: DIPHENHYDRAMINE
  5. SENNA-DOCUSATE [Concomitant]
  6. GLUTATHIONE CRYSTALS [Concomitant]
  7. RILUTEK [Concomitant]
     Active Substance: RILUZOLE
  8. LIDOCAINE/PRILOCAINE [Concomitant]
  9. TAMOXIFEN [Concomitant]
     Active Substance: TAMOXIFEN
  10. EPIPEN [Concomitant]
     Active Substance: EPINEPHRINE
  11. OTHER MINERAL SUPPLEMENTS [Concomitant]
     Active Substance: MINERALS
  12. ACIDOPHILUS PROBIOTIC [Concomitant]
  13. SYNTHROID [Concomitant]
     Active Substance: LEVOTHYROXINE SODIUM
  14. OTHER MINERAL SUPPLEMENTS [Concomitant]
     Active Substance: MINERALS
  15. PSYLLIUM HUSK [Concomitant]
     Active Substance: PSYLLIUM HUSK
  16. LUNESTA [Concomitant]
     Active Substance: ESZOPICLONE
  17. XANAX [Concomitant]
     Active Substance: ALPRAZOLAM

REACTIONS (2)
  - Constipation [Recovered/Resolved]
  - Drug dose omission [Recovered/Resolved]

NARRATIVE: CASE EVENT DATE: 201512
